FAERS Safety Report 6392085-0 (Version None)
Quarter: 2009Q4

REPORT INFORMATION
  Report Type: 
  Country: None (occurrence: None)
  Receive Date: 20091007
  Receipt Date: 20091001
  Transmission Date: 20100525
  Serious: Yes (Other)
  Sender: FDA-Public Use
  Company Number: HU-AVENTIS-200916751GDDC

PATIENT
  Age: 62 Year
  Sex: Female
  Weight: 77 kg

DRUGS (3)
  1. ARAVA [Suspect]
     Route: 048
     Dates: start: 20070606, end: 20090705
  2. HUMIRA [Concomitant]
     Route: 058
     Dates: start: 20080611
  3. MOVALIS [Concomitant]
     Route: 048
     Dates: end: 20090301

REACTIONS (2)
  - BLOOD CREATININE INCREASED [None]
  - GLOMERULAR FILTRATION RATE DECREASED [None]
